FAERS Safety Report 13523971 (Version 1)
Quarter: 2017Q2

REPORT INFORMATION
  Report Type: Spontaneous
  Country: US (occurrence: US)
  Receive Date: 20170508
  Receipt Date: 20170508
  Transmission Date: 20170830
  Serious: No
  Sender: FDA-Public Use
  Company Number: US-VIFOR (INTERNATIONAL) INC.-VIT-2016-05148

PATIENT
  Sex: Male

DRUGS (16)
  1. JUNUVIA [Concomitant]
  2. LOPRESSOR [Concomitant]
     Active Substance: METOPROLOL TARTRATE
  3. HYDROCHLOROTHIAZIDE. [Concomitant]
     Active Substance: HYDROCHLOROTHIAZIDE
  4. LANTUS [Concomitant]
     Active Substance: INSULIN GLARGINE
  5. LISINOPRIL. [Concomitant]
     Active Substance: LISINOPRIL
  6. TYLENOL ARTHRITIS PAIN [Concomitant]
     Active Substance: ACETAMINOPHEN
  7. WARFARIN SODIUM. [Concomitant]
     Active Substance: WARFARIN SODIUM
  8. SULFAMETHOXAZOLE/TRIMETHOPRIM [Concomitant]
  9. STOOL SOFTENER (DOCUSATE) [Concomitant]
     Active Substance: DOCUSATE
  10. CEFALEXIN [Concomitant]
     Active Substance: CEPHALEXIN
  11. METOPROLOL TARTRATE. [Concomitant]
     Active Substance: METOPROLOL TARTRATE
  12. LEVOTHYROXINE SODIUM. [Concomitant]
     Active Substance: LEVOTHYROXINE SODIUM
  13. COLCRYS [Concomitant]
     Active Substance: COLCHICINE
  14. VELTASSA [Suspect]
     Active Substance: PATIROMER
     Route: 048
     Dates: start: 20160706
  15. ACETYLSALICYLIC ACID [Concomitant]
     Active Substance: ASPIRIN
  16. VELTASSA [Suspect]
     Active Substance: PATIROMER
     Indication: HYPERKALAEMIA
     Route: 048

REACTIONS (4)
  - Heart rate increased [Unknown]
  - Localised infection [Not Recovered/Not Resolved]
  - Gout [Unknown]
  - Blood potassium increased [Unknown]

NARRATIVE: CASE EVENT DATE: 2017
